FAERS Safety Report 9064433 (Version 1)
Quarter: 2013Q1

REPORT INFORMATION
  Report Type: Spontaneous
  Country: CA (occurrence: CA)
  Receive Date: 20130128
  Receipt Date: 20130128
  Transmission Date: 20140127
  Serious: Yes (Other)
  Sender: FDA-Public Use
  Company Number: PHHY2012CA008001

PATIENT
  Sex: Male

DRUGS (2)
  1. TASIGNA [Suspect]
     Indication: CHRONIC MYELOID LEUKAEMIA
     Dosage: 300 MG, BID
     Route: 048
  2. LOSEC                                   /CAN/ [Concomitant]
     Dosage: 10 MG, QD
     Route: 048

REACTIONS (4)
  - Tendonitis [Unknown]
  - Arthralgia [Unknown]
  - Muscle spasms [Unknown]
  - Fatigue [Unknown]
